FAERS Safety Report 4320194-6 (Version None)
Quarter: 2004Q1

REPORT INFORMATION
  Report Type: 
  Country: None (occurrence: None)
  Receive Date: 20040317
  Receipt Date: 20040305
  Transmission Date: 20041129
  Serious: Yes (Other)
  Sender: FDA-Public Use
  Company Number: US-JNJFOC-20040301647

PATIENT
  Age: 67 Year
  Sex: Female
  Weight: 63.5036 kg

DRUGS (16)
  1. REMICADE [Suspect]
     Indication: RHEUMATOID ARTHRITIS
     Dosage: 400 MG, INTRAVENOUS
     Route: 042
     Dates: start: 20011101
  2. REMICADE [Suspect]
     Indication: RHEUMATOID ARTHRITIS
     Dosage: 400 MG, INTRAVENOUS
     Route: 042
     Dates: start: 20040120
  3. PREDNISONE [Concomitant]
  4. DARVOCET (PROPACET) [Concomitant]
  5. CELEBREX [Concomitant]
  6. PAXIL [Concomitant]
  7. PRAVACHOL [Concomitant]
  8. PLAVIX [Concomitant]
  9. FOSAMAX [Concomitant]
  10. CALCIUM SUPPLEMENT (CALCIUM) [Concomitant]
  11. VITAMIN E [Concomitant]
  12. FOLIC ACID [Concomitant]
  13. MACROBID [Concomitant]
  14. NASONEX [Concomitant]
  15. ASACOL [Concomitant]
  16. DERMOWEN (ALL OTHER THERAPEUTIC PRODUCTS) [Concomitant]

REACTIONS (1)
  - LUNG CARCINOMA CELL TYPE UNSPECIFIED STAGE IV [None]
